FAERS Safety Report 6430101-8 (Version None)
Quarter: 2009Q4

REPORT INFORMATION
  Report Type: 
  Country: None (occurrence: None)
  Receive Date: 20091106
  Receipt Date: 20091104
  Transmission Date: 20100525
  Serious: Yes (Death)
  Sender: FDA-Public Use
  Company Number: US-BRISTOL-MYERS SQUIBB COMPANY-14692818

PATIENT
  Age: 30 Year
  Sex: Female
  Weight: 113 kg

DRUGS (14)
  1. ABILIFY [Suspect]
  2. GEODON [Suspect]
     Dates: start: 20081022
  3. TRAMADOL HCL [Suspect]
     Dates: start: 20081003
  4. ZOLPIDEM [Suspect]
  5. POTASSIUM CHLORIDE [Concomitant]
  6. FUROSEMIDE [Concomitant]
  7. EFFEXOR XR [Concomitant]
  8. EFFEXOR [Concomitant]
  9. BUSPAR [Concomitant]
  10. FOLIC ACID [Concomitant]
  11. SUCRALFATE [Concomitant]
  12. LAMOTRIGINE [Concomitant]
  13. OMEPRAZOLE [Concomitant]
  14. ERY-TAB [Concomitant]

REACTIONS (1)
  - MYOCARDIAL INFARCTION [None]
